FAERS Safety Report 20692611 (Version 1)
Quarter: 2022Q2

REPORT INFORMATION
  Report Type: Spontaneous
  Country: US (occurrence: US)
  Receive Date: 20220409
  Receipt Date: 20220409
  Transmission Date: 20220721
  Serious: Yes (Death, Life-Threatening, Hospitalization, Other)
  Sender: FDA-Public Use
  Company Number: US-AMGEN-USASP2022060469

PATIENT

DRUGS (1)
  1. BLINATUMOMAB [Suspect]
     Active Substance: BLINATUMOMAB
     Indication: Acute lymphocytic leukaemia
     Dosage: UNK
     Route: 065

REACTIONS (14)
  - Death [Fatal]
  - Hepatotoxicity [Unknown]
  - Unevaluable event [Unknown]
  - Acute lymphocytic leukaemia recurrent [Unknown]
  - Acute kidney injury [Unknown]
  - Neurotoxicity [Unknown]
  - Cytokine release syndrome [Unknown]
  - Thrombocytopenia [Not Recovered/Not Resolved]
  - Neutropenia [Not Recovered/Not Resolved]
  - Febrile neutropenia [Unknown]
  - Bacteraemia [Unknown]
  - Drug ineffective [Unknown]
  - Minimal residual disease [Unknown]
  - Toxicity to various agents [Unknown]
